FAERS Safety Report 8022641-5 (Version None)
Quarter: 2011Q4

REPORT INFORMATION
  Report Type: 
  Country: None (occurrence: None)
  Receive Date: 20111229
  Receipt Date: 20111216
  Transmission Date: 20120403
  Serious: Yes (Other)
  Sender: FDA-Public Use
  Company Number: 1000026450

PATIENT
  Age: 66 Year
  Sex: Female

DRUGS (3)
  1. NEBIVOLOL HCL [Suspect]
     Dosage: 5 MG (5 MG, 1 IN 1 D), ORAL
     Route: 048
     Dates: start: 20101002, end: 20111001
  2. OLPRESS (OLMESARTAN MEDOXOMIL) [Suspect]
     Dosage: 20 MG (20 MG, 1 IN 1 D), ORAL
     Route: 048
     Dates: start: 20101002, end: 20111001
  3. AGGRENOX [Suspect]
     Dosage: 200/25 MG (1 IN 1 D)
     Dates: start: 20101002, end: 20111001

REACTIONS (1)
  - STEAL SYNDROME [None]
